FAERS Safety Report 14028104 (Version 1)
Quarter: 2017Q4

REPORT INFORMATION
  Report Type: Spontaneous
  Country: US (occurrence: US)
  Receive Date: 20171002
  Receipt Date: 20171002
  Transmission Date: 20180321
  Serious: No
  Sender: FDA-Public Use
  Company Number: US-ASTRAZENECA-2017SE99821

PATIENT
  Age: 59 Year
  Sex: Female

DRUGS (1)
  1. ALVESCO [Suspect]
     Active Substance: CICLESONIDE
     Route: 055

REACTIONS (4)
  - Retinopathy haemorrhagic [Unknown]
  - Nasopharyngitis [Unknown]
  - Asthma [Unknown]
  - Adverse drug reaction [Unknown]
